FAERS Safety Report 22000086 (Version 1)
Quarter: 2023Q1

REPORT INFORMATION
  Report Type: Spontaneous
  Country: AU (occurrence: AU)
  Receive Date: 20230216
  Receipt Date: 20230216
  Transmission Date: 20230417
  Serious: Yes (Hospitalization, Other)
  Sender: FDA-Public Use
  Company Number: AU-AMGEN-AUSSP2023024449

PATIENT
  Age: 18 Year
  Sex: Female

DRUGS (12)
  1. FILGRASTIM [Suspect]
     Active Substance: FILGRASTIM
     Indication: Acute myeloid leukaemia
     Dosage: UNK, 1 DAY
     Route: 058
     Dates: start: 20220513, end: 20220530
  2. FLUDARABINE [Suspect]
     Active Substance: FLUDARABINE PHOSPHATE
     Indication: Acute myeloid leukaemia
     Dosage: 30 MILLIMOLE PER SQUARE METRE, 5 DOSES, 1 DAY
     Route: 040
     Dates: start: 20220419, end: 20220423
  3. IDARUBICIN [Suspect]
     Active Substance: IDARUBICIN
     Indication: Acute myeloid leukaemia
     Dosage: 8 MILLIGRAM/SQ. METER
     Route: 040
     Dates: start: 20220419, end: 20220421
  4. CYTARABINE [Suspect]
     Active Substance: CYTARABINE
     Indication: Acute myeloid leukaemia
     Dosage: 100 MILLIGRAM/SQ. METER,  20 DOSES
     Route: 065
     Dates: start: 20220304
  5. CYTARABINE [Suspect]
     Active Substance: CYTARABINE
     Dosage: 2000 MILLIMOLE PER SQUARE METRE, 5 DOSES
     Route: 065
     Dates: start: 2022
  6. GEMTUZUMAB OZOGAMICIN [Suspect]
     Active Substance: GEMTUZUMAB OZOGAMICIN
     Indication: Acute myeloid leukaemia
     Dosage: 3 MILLIMOLE PER SQUARE METRE, 3 DOSES
     Route: 065
     Dates: start: 20220304
  7. MITOXANTRONE [Suspect]
     Active Substance: MITOXANTRONE HYDROCHLORIDE
     Indication: Acute myeloid leukaemia
     Dosage: 12 MILLIMOLE PER SQUARE METRE, 4 DOSES
     Route: 040
     Dates: start: 20220304, end: 20220307
  8. AMPHOTERICIN B [Concomitant]
     Active Substance: AMPHOTERICIN B
     Indication: Prophylaxis
     Dosage: 1 MILLIGRAM/KILOGRAM, 1 DAY
     Dates: start: 20220530
  9. PENTAMIDINE [Concomitant]
     Active Substance: PENTAMIDINE
     Indication: Prophylaxis
     Dosage: 165 MILLIGRAM, 1 MONTH
     Dates: start: 20220606
  10. CEFEPIME [Concomitant]
     Active Substance: CEFEPIME HYDROCHLORIDE
     Indication: Febrile neutropenia
     Dosage: 50 MILLIGRAM/KILOGRAM
     Dates: start: 20220606
  11. MICAFUNGIN [Concomitant]
     Active Substance: MICAFUNGIN
     Indication: Product used for unknown indication
     Dosage: 200 MILLIGRAM, 1 DAY
     Dates: start: 20220514
  12. MOXIFLOXACIN [Concomitant]
     Active Substance: MOXIFLOXACIN
     Indication: Febrile neutropenia
     Dosage: 400 MILLIGRAM, 1 DAY
     Dates: start: 20220617

REACTIONS (2)
  - Acute myeloid leukaemia recurrent [Not Recovered/Not Resolved]
  - Toxicity to various agents [Not Recovered/Not Resolved]

NARRATIVE: CASE EVENT DATE: 20220101
